FAERS Safety Report 18703639 (Version 1)
Quarter: 2021Q1

REPORT INFORMATION
  Report Type: Spontaneous
  Country: US (occurrence: US)
  Receive Date: 20210105
  Receipt Date: 20210105
  Transmission Date: 20210419
  Serious: No
  Sender: FDA-Public Use
  Company Number: US-THERATECHNOLOGIES INC.-2020-THE-TES-000333

PATIENT
  Sex: Male

DRUGS (12)
  1. METOPROLOL. [Concomitant]
     Active Substance: METOPROLOL
  2. ATORVASTATIN [Concomitant]
     Active Substance: ATORVASTATIN
  3. ZOLPIDEM [Concomitant]
     Active Substance: ZOLPIDEM TARTRATE
  4. LOSARTAN. [Concomitant]
     Active Substance: LOSARTAN
  5. ABACAVIR/LAMIVUDINE [Concomitant]
     Active Substance: ABACAVIR\LAMIVUDINE
  6. INDAPAMIDE. [Concomitant]
     Active Substance: INDAPAMIDE
  7. MELOXICAM. [Concomitant]
     Active Substance: MELOXICAM
  8. SAW PALMETTO                       /00833501/ [Concomitant]
     Active Substance: HERBALS\SAW PALMETTO
  9. EGRIFTA SV [Suspect]
     Active Substance: TESAMORELIN ACETATE
     Indication: LIPODYSTROPHY ACQUIRED
     Dosage: 1.4 MG, QD
     Route: 058
     Dates: start: 20200711
  10. LORAZEPAM. [Concomitant]
     Active Substance: LORAZEPAM
  11. NEVIRAPINE. [Concomitant]
     Active Substance: NEVIRAPINE
  12. TESTOSTERONE CYPIONATE. [Concomitant]
     Active Substance: TESTOSTERONE CYPIONATE

REACTIONS (2)
  - Product administration error [Not Recovered/Not Resolved]
  - Product quality issue [Unknown]
